FAERS Safety Report 4790059-4 (Version None)
Quarter: 2005Q4

REPORT INFORMATION
  Report Type: 
  Country: None (occurrence: None)
  Receive Date: 20051005
  Receipt Date: 20051005
  Transmission Date: 20060501
  Serious: Yes (Hospitalization)
  Sender: FDA-Public Use
  Company Number: None

PATIENT
  Sex: Male

DRUGS (2)
  1. EPIRUBICIN [Suspect]
     Indication: HEPATIC NEOPLASM MALIGNANT
     Dosage: 90MG/M2  ONCE EVERY  IV
     Route: 042
     Dates: start: 20050718, end: 20050829
  2. CELECOXIB  200MG [Suspect]
     Indication: HEPATIC NEOPLASM MALIGNANT
     Dosage: 200MG  EVERY DAY PO
     Route: 048
     Dates: start: 20050718, end: 20050829

REACTIONS (5)
  - ASPERGILLOSIS [None]
  - COMPUTERISED TOMOGRAM ABNORMAL [None]
  - LUNG INFECTION PSEUDOMONAL [None]
  - NASAL CONGESTION [None]
  - RHINORRHOEA [None]
